FAERS Safety Report 8420139 (Version 6)
Quarter: 2013Q1

REPORT INFORMATION
  Report Type: Spontaneous
  Country: US (occurrence: US)
  Receive Date: 20120222
  Receipt Date: 20130107
  Transmission Date: 20140127
  Serious: Yes (Hospitalization)
  Sender: FDA-Public Use
  Company Number: US-GENZYME-HECT-1000180

PATIENT
  Age: 56 None
  Sex: Female

DRUGS (1)
  1. HECTOROL [Suspect]
     Indication: HYPERPARATHYROIDISM SECONDARY
     Dosage: 1 MCG, UNK
     Route: 042
     Dates: start: 20120211

REACTIONS (3)
  - Respiratory distress [Unknown]
  - Anaphylactic reaction [Recovered/Resolved with Sequelae]
  - Mental status changes [Recovered/Resolved with Sequelae]
